FAERS Safety Report 15088458 (Version 1)
Quarter: 2018Q2

REPORT INFORMATION
  Report Type: Spontaneous
  Country: IT (occurrence: IT)
  Receive Date: 20180629
  Receipt Date: 20180629
  Transmission Date: 20180711
  Serious: Yes (Hospitalization)
  Sender: FDA-Public Use
  Company Number: IT-TEVA-2018-IT-919443

PATIENT
  Age: 44 Year
  Sex: Male

DRUGS (2)
  1. AULIN [Suspect]
     Active Substance: NIMESULIDE
     Indication: INFLAMMATION
     Route: 048
  2. AMOXICILLIN W/CLAVULANIC ACID [Suspect]
     Active Substance: AMOXICILLIN\CLAVULANIC ACID
     Indication: ANTIBIOTIC THERAPY
     Route: 048

REACTIONS (2)
  - Pharyngeal oedema [Unknown]
  - Swollen tongue [Unknown]

NARRATIVE: CASE EVENT DATE: 20180406
